FAERS Safety Report 7982107-5 (Version None)
Quarter: 2011Q4

REPORT INFORMATION
  Report Type: 
  Country: None (occurrence: None)
  Receive Date: 20111215
  Receipt Date: 20111207
  Transmission Date: 20120403
  Serious: Yes (Hospitalization)
  Sender: FDA-Public Use
  Company Number: JP-B.I. PHARMACEUTICALS,INC./RIDGEFIELD-2011-BP-26786NB

PATIENT
  Sex: Female
  Weight: 34 kg

DRUGS (11)
  1. VESICARE [Concomitant]
     Indication: HYPERTONIC BLADDER
     Dosage: 10 MG
     Route: 048
     Dates: end: 20110915
  2. DIGOXIN [Concomitant]
     Indication: ARRHYTHMIA
     Dosage: 0.25 MG
     Route: 048
     Dates: end: 20110915
  3. PRADAXA [Suspect]
     Indication: ATRIAL FIBRILLATION
     Dosage: 220 MG
     Route: 048
     Dates: start: 20110601
  4. ALDACTONE [Concomitant]
     Indication: CARDIAC FAILURE
     Dosage: 25 MG
     Route: 048
     Dates: end: 20110915
  5. BIO-THREE [Concomitant]
     Route: 048
     Dates: end: 20110915
  6. LENDORMIN [Concomitant]
     Indication: INSOMNIA
     Dosage: 0.25 MG
     Route: 048
     Dates: end: 20110915
  7. LANSOPRAZOLE [Concomitant]
     Dosage: 15 MG
     Route: 048
     Dates: end: 20110915
  8. PRADAXA [Suspect]
     Dosage: 150 MG
     Route: 048
     Dates: start: 20110818
  9. PANCREAZE [Concomitant]
     Route: 048
     Dates: end: 20110915
  10. SELBEX [Concomitant]
     Dosage: 150 MG
     Route: 048
     Dates: end: 20110915
  11. CINAL [Concomitant]
     Route: 048
     Dates: end: 20110915

REACTIONS (2)
  - PNEUMONIA [None]
  - HAEMATEMESIS [None]
